FAERS Safety Report 21603017 (Version 3)
Quarter: 2023Q1

REPORT INFORMATION
  Report Type: Report from Study
  Country: US (occurrence: US)
  Receive Date: 20221116
  Receipt Date: 20230116
  Transmission Date: 20230418
  Serious: Yes (Hospitalization, Other)
  Sender: FDA-Public Use
  Company Number: US-TAKEDA-2022TUS072235

PATIENT
  Age: 62 Year
  Sex: Male
  Weight: 79 kg

DRUGS (13)
  1. MOBOCERTINIB [Suspect]
     Active Substance: MOBOCERTINIB
     Indication: Lung neoplasm malignant
     Dosage: 160 MILLIGRAM, QD
     Route: 065
     Dates: start: 20221007
  2. MOBOCERTINIB [Suspect]
     Active Substance: MOBOCERTINIB
     Indication: Lung cancer metastatic
  3. AMLODIPINE BESYLATE [Concomitant]
     Active Substance: AMLODIPINE BESYLATE
     Indication: Blood pressure measurement
     Dosage: 20 MILLIGRAM
     Route: 065
  4. METOPROLOL [Concomitant]
     Active Substance: METOPROLOL
     Indication: Blood pressure measurement
     Dosage: UNK
     Route: 065
  5. LISINOPRIL [Concomitant]
     Active Substance: LISINOPRIL
     Indication: Blood pressure measurement
     Dosage: UNK
     Route: 065
  6. GLIMEPIRIDE [Concomitant]
     Active Substance: GLIMEPIRIDE
     Indication: Type 2 diabetes mellitus
     Dosage: UNK
     Route: 065
  7. PANTOPRAZOLE [Concomitant]
     Active Substance: PANTOPRAZOLE
     Dosage: UNK
     Route: 065
  8. ASPIRIN [Concomitant]
     Active Substance: ASPIRIN
     Dosage: UNK
     Route: 065
  9. NITROGLYCERIN [Concomitant]
     Active Substance: NITROGLYCERIN
     Dosage: UNK
     Route: 065
  10. VITAMIN C [Concomitant]
     Active Substance: ASCORBIC ACID
     Dosage: UNK
     Route: 065
  11. FOLIC ACID [Concomitant]
     Active Substance: FOLIC ACID
     Dosage: UNK
     Route: 065
  12. ALGAE OMEGA 3 [Concomitant]
     Dosage: UNK
     Route: 065
  13. PROMETHAZINE [Concomitant]
     Active Substance: PROMETHAZINE HYDROCHLORIDE
     Dosage: UNK
     Route: 065

REACTIONS (18)
  - Bacterial infection [Recovering/Resolving]
  - Pneumonia bacterial [Recovering/Resolving]
  - Eye infection [Unknown]
  - Pain [Recovering/Resolving]
  - Hypophagia [Recovering/Resolving]
  - Blood glucose increased [Unknown]
  - Dizziness [Unknown]
  - Malaise [Unknown]
  - Vertigo [Unknown]
  - Epistaxis [Unknown]
  - Blood pressure decreased [Unknown]
  - Headache [Unknown]
  - Arthralgia [Unknown]
  - Neck pain [Unknown]
  - Dry skin [Unknown]
  - Nausea [Unknown]
  - Diarrhoea [Unknown]
  - Asthenia [Recovering/Resolving]

NARRATIVE: CASE EVENT DATE: 20221007
